FAERS Safety Report 14709685 (Version 2)
Quarter: 2018Q4

REPORT INFORMATION
  Report Type: Spontaneous
  Country: FR (occurrence: FR)
  Receive Date: 20180403
  Receipt Date: 20181023
  Transmission Date: 20190204
  Serious: Yes (Other)
  Sender: FDA-Public Use
  Company Number: FR-MERCK KGAA-2045008

PATIENT
  Age: 45 Year
  Sex: Female

DRUGS (1)
  1. EUTHYROX [Suspect]
     Active Substance: LEVOTHYROXINE SODIUM
     Indication: HYPOTHYROIDISM
     Dates: start: 201704

REACTIONS (29)
  - Mental disorder [None]
  - Memory impairment [None]
  - Crying [None]
  - Asthenia [None]
  - Paraesthesia [None]
  - Decreased interest [None]
  - Libido decreased [None]
  - Self esteem decreased [None]
  - Constipation [None]
  - Depression [None]
  - Muscle spasms [None]
  - Weight increased [None]
  - Fatigue [None]
  - Feeling abnormal [None]
  - Abnormal behaviour [None]
  - Blood creatine phosphokinase increased [None]
  - Dyspnoea [None]
  - Intestinal obstruction [None]
  - Disturbance in attention [None]
  - Abdominal distension [None]
  - Palpitations [None]
  - Nerve injury [None]
  - Anxiety [None]
  - Blood thyroid stimulating hormone decreased [None]
  - Headache [None]
  - Vertigo [None]
  - Gastrointestinal pain [None]
  - Dry eye [None]
  - Mood swings [None]

NARRATIVE: CASE EVENT DATE: 201704
